FAERS Safety Report 13559048 (Version 3)
Quarter: 2017Q2

REPORT INFORMATION
  Report Type: Spontaneous
  Country: US (occurrence: US)
  Receive Date: 20170518
  Receipt Date: 20170630
  Transmission Date: 20170830
  Serious: Yes (Other)
  Sender: FDA-Public Use
  Company Number: US-JNJFOC-20170515669

PATIENT
  Age: 57 Year
  Sex: Female
  Weight: 148 kg

DRUGS (36)
  1. SOLU-MEDROL [Concomitant]
     Active Substance: METHYLPREDNISOLONE SODIUM SUCCINATE
     Indication: PREMEDICATION
     Route: 042
     Dates: start: 20170515
  2. ERGOCALCIFEROL. [Concomitant]
     Active Substance: ERGOCALCIFEROL
     Route: 048
  3. GABAPENTIN. [Concomitant]
     Active Substance: GABAPENTIN
     Route: 048
     Dates: start: 20170530
  4. METHOTREXATE SODIUM. [Concomitant]
     Active Substance: METHOTREXATE SODIUM
     Route: 058
     Dates: start: 20160808
  5. OLOPATADINE. [Concomitant]
     Active Substance: OLOPATADINE
     Route: 065
     Dates: start: 20161205
  6. PREDNISONE. [Concomitant]
     Active Substance: PREDNISONE
     Route: 048
  7. LEVOTHYROXINE. [Concomitant]
     Active Substance: LEVOTHYROXINE
     Indication: HYPOTHYROIDISM
     Dosage: 75 MCG
     Route: 048
  8. METFORMIN [Concomitant]
     Active Substance: METFORMIN HYDROCHLORIDE
     Route: 048
     Dates: start: 20170410
  9. SIMVASTATIN. [Concomitant]
     Active Substance: SIMVASTATIN
     Indication: BLOOD CHOLESTEROL DECREASED
     Route: 048
     Dates: start: 20170410
  10. TRIAMTERENE AND HYDROCHLOROTHIAZIDE [Concomitant]
     Active Substance: HYDROCHLOROTHIAZIDE\TRIAMTERENE
     Route: 048
     Dates: start: 20170613
  11. LOTEMAX [Concomitant]
     Active Substance: LOTEPREDNOL ETABONATE
     Route: 065
     Dates: start: 20161230
  12. REMICADE [Suspect]
     Active Substance: INFLIXIMAB
     Indication: PSORIATIC ARTHROPATHY
     Dosage: 800 MG
     Route: 042
     Dates: start: 20170320, end: 20170515
  13. REMICADE [Suspect]
     Active Substance: INFLIXIMAB
     Indication: PSORIATIC ARTHROPATHY
     Dosage: 800 MG
     Route: 042
     Dates: start: 20150909
  14. MECLIZINE [Concomitant]
     Active Substance: MECLIZINE HYDROCHLORIDE
     Indication: DIZZINESS
     Dosage: AS NEEDED
     Route: 048
     Dates: start: 20170602
  15. METHOCARBAMOL. [Concomitant]
     Active Substance: METHOCARBAMOL
     Indication: MUSCLE SPASMS
     Dosage: AS NEEDED
     Route: 048
  16. OMEPRAZOLE. [Concomitant]
     Active Substance: OMEPRAZOLE
     Route: 065
  17. POLYETHYLENE GLYCOL [Concomitant]
     Active Substance: POLYETHYLENE GLYCOLS
     Route: 065
  18. PREDNISONE. [Concomitant]
     Active Substance: PREDNISONE
     Route: 048
     Dates: start: 20170321
  19. BUPROPION. [Concomitant]
     Active Substance: BUPROPION
     Indication: DEPRESSION
     Route: 048
     Dates: start: 20170327
  20. FLUOROMETHOLONE. [Concomitant]
     Active Substance: FLUOROMETHOLONE
     Route: 065
     Dates: start: 20170519
  21. GLIPIZIDE. [Concomitant]
     Active Substance: GLIPIZIDE
     Route: 048
     Dates: start: 20170515
  22. LOTEMAX [Concomitant]
     Active Substance: LOTEPREDNOL ETABONATE
     Route: 065
     Dates: start: 20160926
  23. PREDNISONE. [Concomitant]
     Active Substance: PREDNISONE
     Route: 048
  24. LORATADINE. [Concomitant]
     Active Substance: LORATADINE
     Indication: PREMEDICATION
     Route: 048
     Dates: start: 20170515
  25. CHOLECALCIFEROL [Concomitant]
     Active Substance: CHOLECALCIFEROL
     Route: 048
     Dates: start: 20170406
  26. FOLIC ACID. [Concomitant]
     Active Substance: FOLIC ACID
     Route: 048
  27. MELOXICAM. [Concomitant]
     Active Substance: MELOXICAM
     Route: 048
     Dates: start: 20151023
  28. PREDNISOLONE ACETATE. [Concomitant]
     Active Substance: PREDNISOLONE ACETATE
     Route: 047
     Dates: start: 20170308
  29. TRAMADOL. [Concomitant]
     Active Substance: TRAMADOL
     Indication: PAIN
     Route: 048
  30. FISH OIL [Concomitant]
     Active Substance: FISH OIL
     Route: 065
  31. KETOROLAC TROMETHAMINE. [Concomitant]
     Active Substance: KETOROLAC TROMETHAMINE
     Route: 065
     Dates: start: 20170308
  32. MAGNESIUM OXIDE. [Concomitant]
     Active Substance: MAGNESIUM OXIDE
     Route: 048
     Dates: start: 20160218
  33. TRIAMCINOLONE ACETONIDE. [Concomitant]
     Active Substance: TRIAMCINOLONE ACETONIDE
     Dosage: AS NEEDED
     Route: 065
     Dates: start: 20170619
  34. ERYTHROMYCIN. [Concomitant]
     Active Substance: ERYTHROMYCIN
     Route: 047
     Dates: start: 20160830
  35. OFLOXACIN. [Concomitant]
     Active Substance: OFLOXACIN
     Route: 065
     Dates: start: 20170308
  36. TRAMADOL. [Concomitant]
     Active Substance: TRAMADOL
     Indication: PAIN
     Dosage: AS NEEDED
     Route: 048

REACTIONS (12)
  - Back pain [Recovered/Resolved]
  - Cataract [Recovered/Resolved]
  - Eye pain [Recovered/Resolved]
  - Headache [Recovered/Resolved]
  - Feeling hot [Recovered/Resolved]
  - Flushing [Recovered/Resolved]
  - Visual impairment [Recovered/Resolved]
  - Psoriatic arthropathy [Unknown]
  - Photophobia [Recovered/Resolved]
  - Fatigue [Recovered/Resolved]
  - Nausea [Recovered/Resolved]
  - Infusion related reaction [Recovered/Resolved]

NARRATIVE: CASE EVENT DATE: 2017
